FAERS Safety Report 5033750-7 (Version None)
Quarter: 2006Q2

REPORT INFORMATION
  Report Type: 
  Country: None (occurrence: None)
  Receive Date: 20060623
  Receipt Date: 20060619
  Transmission Date: 20061013
  Serious: Yes (Hospitalization)
  Sender: FDA-Public Use
  Company Number: FR-BRISTOL-MYERS SQUIBB COMPANY-13417571

PATIENT
  Age: 88 Year
  Sex: Female
  Weight: 50 kg

DRUGS (9)
  1. APROVEL TABS 150 MG [Suspect]
  2. PLAVIX [Suspect]
  3. VASTAREL [Suspect]
  4. LEXOMIL [Suspect]
  5. FOSAMAX [Suspect]
  6. ADANCOR [Suspect]
  7. IMOVANE [Concomitant]
  8. DOLIPRANE [Concomitant]
  9. CALCIDOSE [Concomitant]

REACTIONS (5)
  - BLOOD FOLATE ABNORMAL [None]
  - CONFUSIONAL STATE [None]
  - HYPOGLYCAEMIA [None]
  - MALAISE [None]
  - SYNCOPE [None]
